FAERS Safety Report 15576515 (Version 1)
Quarter: 2018Q4

REPORT INFORMATION
  Report Type: Spontaneous
  Country: US (occurrence: US)
  Receive Date: 20181101
  Receipt Date: 20181101
  Transmission Date: 20190205
  Serious: Yes (Congenital Anomaly, Other)
  Sender: FDA-Public Use
  Company Number: US-PFIZER INC-2018437601

PATIENT
  Sex: Female
  Weight: 4 kg

DRUGS (13)
  1. DHA [Concomitant]
     Active Substance: DIETARY SUPPLEMENT
     Dosage: 2 DF, 1X/DAY
     Route: 064
     Dates: start: 20160127, end: 20160829
  2. FOLIC ACID. [Concomitant]
     Active Substance: FOLIC ACID
     Dosage: 800 UG, 1X/DAY
     Route: 064
     Dates: start: 20151129, end: 20160126
  3. KEFLEX [Concomitant]
     Active Substance: CEPHALEXIN
     Indication: URINARY TRACT INFECTION
     Dosage: 500 MG, 2X/DAY
     Route: 064
     Dates: start: 20151214, end: 20151220
  4. ZOFRAN [Concomitant]
     Active Substance: ONDANSETRON HYDROCHLORIDE
     Indication: VOMITING
     Dosage: 4 MG, UNK (FRQ:2; UNIT: WK)
     Route: 064
     Dates: start: 20160415, end: 20160829
  5. TUMS [Concomitant]
     Active Substance: CALCIUM CARBONATE
     Indication: DYSPEPSIA
     Dosage: 3 DF, 1X/DAY
     Route: 064
     Dates: start: 20160101, end: 20160829
  6. VITAMIN B6 [Concomitant]
     Active Substance: PYRIDOXINE HYDROCHLORIDE
     Indication: NAUSEA
     Dosage: 100 MG, 1X/DAY
     Route: 064
     Dates: start: 20160127, end: 20160413
  7. TDAP [Concomitant]
     Active Substance: TETANUS TOXOID, REDUCED DIPHTHERIA TOXOID AND ACELLULAR PERTUSSIS VACCINE ADSORBED, TDAP
     Indication: IMMUNISATION
     Dosage: UNK UNK, SINGLE
     Route: 064
     Dates: start: 20160707, end: 20160707
  8. XELJANZ [Suspect]
     Active Substance: TOFACITINIB CITRATE
     Indication: JUVENILE IDIOPATHIC ARTHRITIS
     Dosage: 5 MG, 2X/DAY
     Route: 064
     Dates: start: 20140801
  9. FLU VACCINE VII [Concomitant]
     Active Substance: INFLUENZA VIRUS VACCINE
     Indication: IMMUNISATION
     Dosage: UNK UNK, SINGLE
     Route: 064
     Dates: start: 20151014, end: 20151014
  10. DHA [Concomitant]
     Active Substance: DIETARY SUPPLEMENT
     Indication: SUPPLEMENTATION THERAPY
     Dosage: 1 DF, 1X/DAY
     Route: 064
     Dates: start: 20151129, end: 20160126
  11. FOLIC ACID. [Concomitant]
     Active Substance: FOLIC ACID
     Dosage: 1 MG, 1X/DAY
     Route: 064
     Dates: start: 20160415, end: 20160829
  12. RHOGAM [Concomitant]
     Active Substance: HUMAN RHO(D) IMMUNE GLOBULIN
     Dosage: UNK UNK, SINGLE
     Route: 064
     Dates: start: 20160617, end: 20160617
  13. ZOFRAN [Concomitant]
     Active Substance: ONDANSETRON HYDROCHLORIDE
     Indication: NAUSEA
     Dosage: 4 MG, UNK (FRQ:4; UNIT: WK)
     Route: 064
     Dates: start: 20160204, end: 20160414

REACTIONS (2)
  - Foetal exposure timing unspecified [Unknown]
  - Hydronephrosis [Unknown]
